FAERS Safety Report 13744692 (Version 1)
Quarter: 2017Q3

REPORT INFORMATION
  Report Type: Spontaneous
  Country: US (occurrence: US)
  Receive Date: 20170711
  Receipt Date: 20170711
  Transmission Date: 20171127
  Serious: Yes (Life-Threatening, Hospitalization)
  Sender: FDA-Public Use
  Company Number: None

PATIENT
  Age: 31 Year
  Sex: Male
  Weight: 114.7 kg

DRUGS (4)
  1. ONE A DAY MEN VITAMINS [Concomitant]
  2. CLOMIPHENE [Suspect]
     Active Substance: CLOMIPHENE
     Indication: BLOOD TESTOSTERONE DECREASED
     Dosage: ?          OTHER STRENGTH:MG/ML;?
  3. ALERA INHALER [Concomitant]
  4. ELIQUIS [Concomitant]
     Active Substance: APIXABAN

REACTIONS (1)
  - Pulmonary embolism [None]

NARRATIVE: CASE EVENT DATE: 20161027
